FAERS Safety Report 16917357 (Version 14)
Quarter: 2021Q1

REPORT INFORMATION
  Report Type: Spontaneous
  Country: AR (occurrence: AR)
  Receive Date: 20191015
  Receipt Date: 20210125
  Transmission Date: 20210419
  Serious: Yes (Hospitalization, Other)
  Sender: FDA-Public Use
  Company Number: AR-GLAXOSMITHKLINE-AR2019AMR182379

PATIENT
  Age: 71 Year
  Sex: Female

DRUGS (1)
  1. NUCALA [Suspect]
     Active Substance: MEPOLIZUMAB
     Indication: ASTHMA
     Dosage: UNK
     Route: 058
     Dates: start: 20190823

REACTIONS (17)
  - Asthmatic crisis [Unknown]
  - Asthma [Unknown]
  - Lower respiratory tract infection [Unknown]
  - Fatigue [Unknown]
  - Pancreatic neoplasm [Unknown]
  - Asthenia [Unknown]
  - Muscle spasms [Unknown]
  - Ear pain [Unknown]
  - Tinnitus [Unknown]
  - Dyspnoea [Not Recovered/Not Resolved]
  - Product use in unapproved indication [Unknown]
  - Coronavirus infection [Unknown]
  - Peripheral swelling [Unknown]
  - Somnolence [Unknown]
  - Retinal detachment [Recovered/Resolved]
  - Cough [Unknown]
  - Pain in extremity [Unknown]

NARRATIVE: CASE EVENT DATE: 2019
